FAERS Safety Report 17925677 (Version 1)
Quarter: 2020Q2

REPORT INFORMATION
  Report Type: Spontaneous
  Country: FR (occurrence: FR)
  Receive Date: 20200622
  Receipt Date: 20200622
  Transmission Date: 20200714
  Serious: Yes (Hospitalization, Other)
  Sender: FDA-Public Use
  Company Number: FR-PFM-2020-14899

PATIENT

DRUGS (4)
  1. HYDROXYZINE [Concomitant]
     Active Substance: HYDROXYZINE HYDROCHLORIDE
     Indication: ANXIETY
     Dosage: 50 MG DAILY
     Route: 048
     Dates: start: 20191011, end: 20191015
  2. NEO-MERCAZOLE [Suspect]
     Active Substance: CARBIMAZOLE
     Indication: BASEDOW^S DISEASE
     Dosage: 40 MG DAILY
     Route: 048
     Dates: start: 20190913, end: 20191015
  3. PROPRANOLOL [Suspect]
     Active Substance: PROPRANOLOL HYDROCHLORIDE
     Indication: OFF LABEL USE
  4. PROPRANOLOL [Suspect]
     Active Substance: PROPRANOLOL HYDROCHLORIDE
     Indication: TACHYCARDIA
     Dosage: 60 MG DAILY
     Route: 048
     Dates: start: 20190913, end: 20191015

REACTIONS (4)
  - Product use in unapproved indication [Unknown]
  - Product use issue [Unknown]
  - Off label use [Unknown]
  - Hepatitis acute [Recovered/Resolved]

NARRATIVE: CASE EVENT DATE: 20191011
